FAERS Safety Report 11731319 (Version 1)
Quarter: 2015Q4

REPORT INFORMATION
  Report Type: Spontaneous
  Country: US (occurrence: US)
  Receive Date: 20151110
  Receipt Date: 20151110
  Transmission Date: 20160304
  Serious: No
  Sender: FDA-Public Use
  Company Number: US-ELI_LILLY_AND_COMPANY-US201110000562

PATIENT
  Sex: Female

DRUGS (4)
  1. FORTEO [Suspect]
     Active Substance: TERIPARATIDE
     Dosage: 20 UG, QD
  2. FORTEO [Suspect]
     Active Substance: TERIPARATIDE
     Dosage: 20 UG, QD
  3. FORTEO [Suspect]
     Active Substance: TERIPARATIDE
     Indication: OSTEOPOROSIS
     Dosage: 20 UG, QD
  4. VICODIN [Concomitant]
     Active Substance: ACETAMINOPHEN\HYDROCODONE BITARTRATE
     Indication: SCOLIOSIS

REACTIONS (13)
  - Erythema [Unknown]
  - Tremor [Unknown]
  - Diarrhoea haemorrhagic [Unknown]
  - Nausea [Unknown]
  - Malaise [Unknown]
  - Cardiac flutter [Unknown]
  - Vomiting projectile [Unknown]
  - Diarrhoea [Unknown]
  - Dizziness [Unknown]
  - Feeling hot [Unknown]
  - Body temperature decreased [Unknown]
  - Constipation [Unknown]
  - Drug dose omission [Recovered/Resolved]
